FAERS Safety Report 5153716-6 (Version None)
Quarter: 2006Q4

REPORT INFORMATION
  Report Type: 
  Country: None (occurrence: None)
  Receive Date: 20061118
  Receipt Date: 20061110
  Transmission Date: 20070319
  Serious: Yes (Other)
  Sender: FDA-Public Use
  Company Number: US-JNJFOC-20060900205

PATIENT
  Sex: Female
  Weight: 51.71 kg

DRUGS (12)
  1. REMICADE [Suspect]
     Route: 042
  2. REMICADE [Suspect]
     Indication: RHEUMATOID ARTHRITIS
     Route: 042
  3. VICODIN [Concomitant]
     Indication: PAIN
  4. NAPROXEN [Concomitant]
     Indication: PAIN
  5. TENORMIN [Concomitant]
     Indication: HYPERTENSION
  6. HYDROCHLOROTHIAZIDE [Concomitant]
     Indication: HYPERTENSION
  7. SLOW-K [Concomitant]
     Indication: HYPERTENSION
  8. METHOTREXATE [Concomitant]
     Indication: RHEUMATOID ARTHRITIS
  9. FOLIC ACID [Concomitant]
  10. OMEGA 3 [Concomitant]
  11. ASCORBIC ACID [Concomitant]
  12. ZINC [Concomitant]

REACTIONS (1)
  - COMPRESSION FRACTURE [None]
